FAERS Safety Report 24842822 (Version 1)
Quarter: 2025Q1

REPORT INFORMATION
  Report Type: Spontaneous
  Country: US (occurrence: US)
  Receive Date: 20250115
  Receipt Date: 20250115
  Transmission Date: 20250409
  Serious: Yes (Hospitalization)
  Sender: AMGEN
  Company Number: US-AMGEN-USASP2025004290

PATIENT
  Age: 31 Year
  Sex: Female
  Weight: 85.5 kg

DRUGS (6)
  1. NEULASTA [Suspect]
     Active Substance: PEGFILGRASTIM
     Indication: T-cell lymphoma
     Route: 065
     Dates: start: 20241127, end: 202412
  2. NEULASTA [Suspect]
     Active Substance: PEGFILGRASTIM
     Indication: Prophylaxis
  3. PREDNISONE [Concomitant]
     Active Substance: PREDNISONE
  4. CYCLOPHOSPHAMIDE [Concomitant]
     Active Substance: CYCLOPHOSPHAMIDE
  5. EPIRUBICIN [Concomitant]
     Active Substance: EPIRUBICIN
  6. ONCOVIN [Concomitant]
     Active Substance: VINCRISTINE SULFATE

REACTIONS (3)
  - Febrile neutropenia [Recovering/Resolving]
  - Pneumonia legionella [Recovering/Resolving]
  - Drug effect less than expected [Unknown]

NARRATIVE: CASE EVENT DATE: 20241201
